FAERS Safety Report 5365877-4 (Version None)
Quarter: 2007Q2

REPORT INFORMATION
  Report Type: 
  Country: None (occurrence: None)
  Receive Date: 20070611
  Receipt Date: 20070205
  Transmission Date: 20071010
  Serious: Yes (Hospitalization, Other)
  Sender: FDA-Public Use
  Company Number: USA-2007-0026414

PATIENT
  Age: 23 Year
  Sex: Male

DRUGS (5)
  1. OXYCONTIN [Suspect]
     Indication: DRUG USE FOR UNKNOWN INDICATION
  2. SEROQUEL [Concomitant]
  3. METHADONE HCL [Concomitant]
  4. KLONOPIN [Concomitant]
  5. PROZAC [Concomitant]

REACTIONS (1)
  - DRUG DEPENDENCE [None]
